FAERS Safety Report 8229222-9 (Version None)
Quarter: 2012Q1

REPORT INFORMATION
  Report Type: 
  Country: None (occurrence: None)
  Receive Date: 20120322
  Receipt Date: 20120221
  Transmission Date: 20120608
  Serious: Yes (Other)
  Sender: FDA-Public Use
  Company Number: GB-JNJFOC-20120304068

PATIENT

DRUGS (4)
  1. KETOCONAZOLE [Interacting]
     Indication: PRODUCT USED FOR UNKNOWN INDICATION
     Route: 048
  2. PLACEBO [Suspect]
     Indication: PRODUCT USED FOR UNKNOWN INDICATION
     Route: 048
  3. DOMPERIDONE [Suspect]
     Indication: PRODUCT USED FOR UNKNOWN INDICATION
     Route: 048
  4. BLINDED; DOMPERIDONE [Suspect]
     Indication: PRODUCT USED FOR UNKNOWN INDICATION
     Route: 048

REACTIONS (5)
  - DRUG INTERACTION [None]
  - BREAST DISCOMFORT [None]
  - ELECTROCARDIOGRAM QT PROLONGED [None]
  - BREAST DISCHARGE [None]
  - ABDOMINAL DISCOMFORT [None]
